FAERS Safety Report 21573739 (Version 1)
Quarter: 2022Q4

REPORT INFORMATION
  Report Type: Spontaneous
  Country: US (occurrence: US)
  Receive Date: 20221109
  Receipt Date: 20221109
  Transmission Date: 20230113
  Serious: Yes (Death, Hospitalization)
  Sender: FDA-Public Use
  Company Number: US-MYLANLABS-2022M1123162

PATIENT

DRUGS (3)
  1. ETOPOSIDE [Suspect]
     Active Substance: ETOPOSIDE
     Indication: Familial haemophagocytic lymphohistiocytosis
     Dosage: UNK; 2 DOSES
     Route: 065
  2. EMAPALUMAB [Suspect]
     Active Substance: EMAPALUMAB
     Indication: Familial haemophagocytic lymphohistiocytosis
     Dosage: UNK
     Route: 065
  3. INTERLEUKIN NOS [Suspect]
     Active Substance: INTERLEUKIN NOS
     Indication: Familial haemophagocytic lymphohistiocytosis
     Dosage: UNK
     Route: 065

REACTIONS (1)
  - Drug ineffective [Fatal]
